FAERS Safety Report 4842269-5 (Version None)
Quarter: 2005Q4

REPORT INFORMATION
  Report Type: 
  Country: None (occurrence: None)
  Receive Date: 20051125
  Receipt Date: 20051115
  Transmission Date: 20060501
  Serious: Yes (Other)
  Sender: FDA-Public Use
  Company Number: 2005156712

PATIENT
  Sex: Female

DRUGS (5)
  1. CELEBREX [Suspect]
     Indication: ARTHRALGIA
     Dosage: 200 MG (200 MG, 1 IN 1 D), ORAL
     Route: 048
  2. CELEBREX [Suspect]
     Indication: HEADACHE
     Dosage: 200 MG (200 MG, 1 IN 1 D), ORAL
     Route: 048
  3. ZYRTEC [Suspect]
     Indication: SINUS DISORDER
     Dosage: 10 MG (10 MG, 1 IN 1 D), ORAL
     Route: 048
  4. EXCEDRIN (MIGRAINE) [Suspect]
     Indication: HEADACHE
  5. TYLENOL SINUS MEDICATION (PARACETAMOL, PSEUDOEPHEDRINE HYDROCHLORIDE) [Suspect]
     Indication: HEADACHE

REACTIONS (3)
  - BRAIN NEOPLASM [None]
  - DRUG INEFFECTIVE [None]
  - PAIN [None]
